FAERS Safety Report 13609647 (Version 8)
Quarter: 2018Q2

REPORT INFORMATION
  Report Type: Spontaneous
  Country: US (occurrence: US)
  Receive Date: 20170602
  Receipt Date: 20180627
  Transmission Date: 20180711
  Serious: Yes (Hospitalization)
  Sender: FDA-Public Use
  Company Number: US-ACTELION-A-US2016-134463

PATIENT
  Age: 67 Year
  Sex: Female
  Weight: 68.27 kg

DRUGS (4)
  1. REMODULIN [Suspect]
     Active Substance: TREPROSTINIL
     Dosage: 26 NG/KG, PER MIN
     Route: 042
  2. REMODULIN [Suspect]
     Active Substance: TREPROSTINIL
     Indication: PRODUCT USED FOR UNKNOWN INDICATION
     Dosage: 29 NG/KG, PER MIN
     Route: 042
  3. ADCIRCA [Concomitant]
     Active Substance: TADALAFIL
     Dosage: UNK
  4. OPSUMIT [Suspect]
     Active Substance: MACITENTAN
     Indication: PULMONARY HYPERTENSION
     Dosage: 10 MG, QD
     Route: 048
     Dates: start: 20140211

REACTIONS (19)
  - Fatigue [Unknown]
  - Cough [Recovering/Resolving]
  - Dyspnoea [Recovered/Resolved]
  - Arthralgia [Unknown]
  - Muscle strain [Unknown]
  - Wisdom teeth removal [Unknown]
  - Pain [Unknown]
  - Chest discomfort [Recovered/Resolved]
  - Back pain [Unknown]
  - Fibrin D dimer increased [Unknown]
  - Tooth abscess [Unknown]
  - Abdominal discomfort [Unknown]
  - Musculoskeletal discomfort [Unknown]
  - Pain in extremity [Unknown]
  - Feeling abnormal [Unknown]
  - Asthenia [Unknown]
  - Bronchitis [Unknown]
  - Arthritis [Unknown]
  - Headache [Unknown]

NARRATIVE: CASE EVENT DATE: 201703
